FAERS Safety Report 4826729-9 (Version None)
Quarter: 2005Q4

REPORT INFORMATION
  Report Type: 
  Country: None (occurrence: None)
  Receive Date: 20051111
  Receipt Date: 20051111
  Transmission Date: 20060501
  Serious: Yes (Other)
  Sender: FDA-Public Use
  Company Number: None

PATIENT
  Age: 50 Year
  Sex: Male
  Weight: 74.8435 kg

DRUGS (1)
  1. ASTELIN [Suspect]
     Indication: NASOPHARYNGITIS
     Dosage: TWO SPRAYS OF .137 ML   TWICE DAILY   NASAL
     Route: 045
     Dates: start: 20050509, end: 20050511

REACTIONS (3)
  - BURNING SENSATION [None]
  - DYSGEUSIA [None]
  - PAROSMIA [None]
